FAERS Safety Report 5351131-3 (Version None)
Quarter: 2007Q2

REPORT INFORMATION
  Report Type: 
  Country: None (occurrence: None)
  Receive Date: 20070608
  Receipt Date: 20070601
  Transmission Date: 20071010
  Serious: Yes (Other)
  Sender: FDA-Public Use
  Company Number: CL-PFIZER INC-2007033114

PATIENT
  Sex: Female

DRUGS (4)
  1. GENOTONORM [Suspect]
  2. FLUTICASONE PROPIONATE [Concomitant]
     Indication: ASTHMA
     Route: 055
  3. NASONEX [Concomitant]
     Indication: ASTHMA
  4. LEVOCETIRIZINE [Concomitant]
     Indication: ASTHMA
     Route: 048

REACTIONS (1)
  - OSTEOCHONDROSIS [None]
